FAERS Safety Report 9425755 (Version 3)
Quarter: 2013Q4

REPORT INFORMATION
  Report Type: Spontaneous
  Country: US (occurrence: US)
  Receive Date: 20130729
  Receipt Date: 20131004
  Transmission Date: 20140711
  Serious: Yes (Other)
  Sender: FDA-Public Use
  Company Number: US-PFIZER INC-2013220084

PATIENT
  Sex: Male

DRUGS (1)
  1. LIPITOR [Suspect]
     Dosage: UNK

REACTIONS (6)
  - Nephrolithiasis [Unknown]
  - Retrograde amnesia [Unknown]
  - Dementia [Unknown]
  - Renal disorder [Unknown]
  - Blood glucose increased [Unknown]
  - Back pain [Unknown]
